FAERS Safety Report 20073299 (Version 1)
Quarter: 2021Q4

REPORT INFORMATION
  Report Type: Spontaneous
  Country: US (occurrence: US)
  Receive Date: 20211116
  Receipt Date: 20211116
  Transmission Date: 20220304
  Serious: No
  Sender: FDA-Public Use
  Company Number: US-NOVARTISTESTPH-NVSC2021US261615

PATIENT
  Age: 61 Year
  Sex: Female

DRUGS (1)
  1. ENTRESTO [Suspect]
     Active Substance: SACUBITRIL\VALSARTAN
     Indication: Angina pectoris
     Dosage: 24 MG, BID
     Route: 048
     Dates: start: 20211015

REACTIONS (1)
  - Wrong technique in product usage process [Unknown]
